FAERS Safety Report 5193360-8 (Version None)
Quarter: 2006Q4

REPORT INFORMATION
  Report Type: 
  Country: None (occurrence: None)
  Receive Date: 20061228
  Receipt Date: 20061016
  Transmission Date: 20070319
  Serious: No
  Sender: FDA-Public Use
  Company Number: US-GLAXOSMITHKLINE-A0623696A

PATIENT
  Age: 61 Year
  Sex: Male

DRUGS (4)
  1. AVODART [Suspect]
     Indication: BENIGN PROSTATIC HYPERPLASIA
     Dosage: .5MG PER DAY
     Route: 048
     Dates: start: 20061009
  2. CARDURA [Concomitant]
  3. ZETIA [Concomitant]
  4. VASOTEC [Concomitant]

REACTIONS (3)
  - DRUG ADMINISTRATION ERROR [None]
  - DYSPHAGIA [None]
  - THROAT IRRITATION [None]
